FAERS Safety Report 6164268-6 (Version None)
Quarter: 2009Q2

REPORT INFORMATION
  Report Type: 
  Country: None (occurrence: None)
  Receive Date: 20090422
  Receipt Date: 20090417
  Transmission Date: 20091009
  Serious: No
  Sender: FDA-Public Use
  Company Number: US-B.I. PHARMACEUTICALS,INC./RIDGEFIELD-2009-BP-00357BP

PATIENT
  Sex: Male

DRUGS (10)
  1. SPIRIVA [Suspect]
     Indication: BRONCHIAL SECRETION RETENTION
     Dosage: 18MCG
     Route: 055
     Dates: start: 20071101, end: 20080301
  2. SPIRIVA [Suspect]
     Dosage: 18MCG
     Route: 055
     Dates: start: 20081201
  3. SIMVASTATIN [Suspect]
     Indication: BLOOD CHOLESTEROL INCREASED
  4. ASPIRIN [Concomitant]
  5. BLOOD PRESSURE PILLS [Concomitant]
     Indication: HYPERTENSION
  6. FISH OIL [Concomitant]
     Dosage: 1200MG
  7. TOPROL-XL [Concomitant]
  8. PROSCAR [Concomitant]
  9. FLOMAX [Concomitant]
  10. HYDROCHLOROTHIAZIDE [Concomitant]

REACTIONS (5)
  - BRONCHIAL SECRETION RETENTION [None]
  - DRUG INEFFECTIVE [None]
  - DRUG INEFFECTIVE FOR UNAPPROVED INDICATION [None]
  - GASTROOESOPHAGEAL REFLUX DISEASE [None]
  - RETCHING [None]
